FAERS Safety Report 12095249 (Version 1)
Quarter: 2016Q1

REPORT INFORMATION
  Report Type: Report from Study
  Country: BR (occurrence: BR)
  Receive Date: 20160219
  Receipt Date: 20160219
  Transmission Date: 20160526
  Serious: Yes (Hospitalization, Other)
  Sender: FDA-Public Use
  Company Number: BR-ABBVIE-13P-020-1099017-00

PATIENT
  Age: 50 Year
  Sex: Female
  Weight: 54 kg

DRUGS (11)
  1. CALCIUM [Concomitant]
     Active Substance: CALCIUM
     Indication: MINERAL SUPPLEMENTATION
     Route: 048
     Dates: start: 2003
  2. HUMIRA [Suspect]
     Active Substance: ADALIMUMAB
     Route: 058
  3. HUMIRA [Suspect]
     Active Substance: ADALIMUMAB
     Dosage: WEEK 2
     Route: 058
     Dates: start: 20130524, end: 20130524
  4. QUINOFLOX [Concomitant]
     Indication: ANTIBIOTIC THERAPY
     Route: 048
     Dates: start: 201304
  5. HUMIRA [Suspect]
     Active Substance: ADALIMUMAB
     Route: 058
     Dates: start: 20130805, end: 201511
  6. OMEPRAZOLE. [Concomitant]
     Active Substance: OMEPRAZOLE
     Indication: GASTRIC DISORDER
     Route: 048
     Dates: start: 2003
  7. QUINOFLOX [Concomitant]
     Route: 048
     Dates: start: 201306
  8. HUMIRA [Suspect]
     Active Substance: ADALIMUMAB
     Indication: CROHN^S DISEASE
     Dosage: WEEK 0
     Route: 058
     Dates: start: 20130510, end: 20130510
  9. MAREVAN [Concomitant]
     Active Substance: WARFARIN SODIUM
     Indication: ANTICOAGULANT THERAPY
     Route: 048
     Dates: start: 2008
  10. OMEPRAZOLE. [Concomitant]
     Active Substance: OMEPRAZOLE
     Indication: PROPHYLAXIS
     Route: 048
     Dates: start: 2006
  11. SLOW K [Concomitant]
     Active Substance: POTASSIUM CHLORIDE
     Indication: BLOOD POTASSIUM DECREASED
     Route: 048
     Dates: start: 2001

REACTIONS (11)
  - Injection site erythema [Recovering/Resolving]
  - Diarrhoea [Recovering/Resolving]
  - Fatigue [Recovered/Resolved]
  - Heart rate increased [Recovered/Resolved]
  - Blood potassium decreased [Recovering/Resolving]
  - Arthralgia [Recovering/Resolving]
  - Muscular weakness [Unknown]
  - Facial paralysis [Recovered/Resolved]
  - Injection site pain [Unknown]
  - Crohn^s disease [Recovering/Resolving]
  - Dysphagia [Unknown]

NARRATIVE: CASE EVENT DATE: 20130525
